FAERS Safety Report 19574222 (Version 1)
Quarter: 2021Q3

REPORT INFORMATION
  Report Type: Spontaneous
  Country: US (occurrence: US)
  Receive Date: 20210719
  Receipt Date: 20210719
  Transmission Date: 20211014
  Serious: No
  Sender: FDA-Public Use
  Company Number: US-SA-2021SA234325

PATIENT
  Age: 80 Year
  Sex: Female

DRUGS (2)
  1. DUPIXENT [Suspect]
     Active Substance: DUPILUMAB
     Indication: DERMATITIS
     Dosage: 300 MG, QOW
     Route: 058
     Dates: start: 20200814
  2. NORDITROPIN [Concomitant]
     Active Substance: SOMATROPIN
     Dosage: UNK

REACTIONS (2)
  - Product use in unapproved indication [Unknown]
  - Rash [Unknown]

NARRATIVE: CASE EVENT DATE: 20200814
